FAERS Safety Report 24641624 (Version 1)
Quarter: 2024Q4

REPORT INFORMATION
  Report Type: Spontaneous
  Country: US (occurrence: None)
  Receive Date: 20241120
  Receipt Date: 20241120
  Transmission Date: 20250115
  Serious: Yes (Death)
  Sender: Public
  Company Number: None

PATIENT
  Age: 67 Year
  Sex: Female
  Weight: 68.7 kg

DRUGS (2)
  1. CISPLATIN [Suspect]
     Active Substance: CISPLATIN
  2. CISPLATIN [Suspect]
     Active Substance: CISPLATIN

REACTIONS (10)
  - Blood electrolytes abnormal [None]
  - Malnutrition [None]
  - Complication associated with device [None]
  - Medical device pain [None]
  - Skin disorder [None]
  - Device dislocation [None]
  - Oral pain [None]
  - Hypomagnesaemia [None]
  - Anaemia [None]
  - Red blood cell transfusion [None]

NARRATIVE: CASE EVENT DATE: 20241115
